FAERS Safety Report 19377277 (Version 2)
Quarter: 2021Q3

REPORT INFORMATION
  Report Type: Spontaneous
  Country: RU (occurrence: RU)
  Receive Date: 20210604
  Receipt Date: 20210716
  Transmission Date: 20211014
  Serious: Yes (Hospitalization)
  Sender: FDA-Public Use
  Company Number: NVSC2021RU122251

PATIENT
  Age: 61 Year
  Sex: Male
  Weight: 98 kg

DRUGS (6)
  1. METHOTREXATE. [Suspect]
     Active Substance: METHOTREXATE
     Indication: PSORIATIC ARTHROPATHY
     Dosage: 20 MG, 2 TABLET AT 8 AND 2 TABLETS AT 20
     Route: 065
     Dates: start: 20180315
  2. METIPRED [Concomitant]
     Active Substance: METHYLPREDNISOLONE
     Indication: PSORIATIC ARTHROPATHY
     Dosage: 4 MG, 2 TABLETS AT 8
     Route: 065
     Dates: start: 20180315
  3. FOLIC ACID. [Concomitant]
     Active Substance: FOLIC ACID
     Indication: ADRENOCORTICAL STEROID THERAPY
     Dosage: 1 MG, ON MON, TUE, FRI AND SAT
     Route: 065
     Dates: start: 20180315
  4. OMEPRAZOLE. [Suspect]
     Active Substance: OMEPRAZOLE
     Indication: ADRENOCORTICAL STEROID THERAPY
     Dosage: 20 MG, QD, BEFORE SLEEP
     Route: 065
     Dates: start: 20180315
  5. CALCIUM SANDOZ FORTE [Suspect]
     Active Substance: CALCIUM CARBONATE\CALCIUM LACTATE GLUCONATE
     Indication: ADRENOCORTICAL STEROID THERAPY
     Dosage: 1000 MG, QD
     Route: 065
     Dates: start: 20180315
  6. ARCOXIA [Concomitant]
     Active Substance: ETORICOXIB
     Indication: PSORIATIC ARTHROPATHY
     Dosage: 90 MG, QD
     Route: 065
     Dates: start: 20180315

REACTIONS (3)
  - Cerebral ischaemia [Recovering/Resolving]
  - Dysarthria [Unknown]
  - Dysphonia [Unknown]

NARRATIVE: CASE EVENT DATE: 20210426
